FAERS Safety Report 10799710 (Version 1)
Quarter: 2015Q1

REPORT INFORMATION
  Report Type: Report from Study
  Country: US (occurrence: US)
  Receive Date: 20150216
  Receipt Date: 20150216
  Transmission Date: 20150721
  Serious: No
  Sender: FDA-Public Use
  Company Number: US-ABBVIE-14K-163-1242185-00

PATIENT
  Age: 49 Year
  Sex: Male

DRUGS (3)
  1. ANTIHISTAMINES [Concomitant]
     Active Substance: ANTIHISTAMINES NOS
     Indication: SEASONAL ALLERGY
     Dosage: OVER THE COUNTER
  2. BENADRYL [Concomitant]
     Active Substance: DIPHENHYDRAMINE HYDROCHLORIDE
     Indication: SEASONAL ALLERGY
  3. HUMIRA [Suspect]
     Active Substance: ADALIMUMAB
     Indication: PSORIASIS
     Dates: start: 201403

REACTIONS (10)
  - Eye swelling [Not Recovered/Not Resolved]
  - Urticaria [Unknown]
  - Eyelid rash [Recovered/Resolved]
  - Eyelid rash [Not Recovered/Not Resolved]
  - Rash papular [Unknown]
  - Rash pruritic [Not Recovered/Not Resolved]
  - Skin disorder [Recovering/Resolving]
  - Skin burning sensation [Unknown]
  - Inflammation [Unknown]
  - Rash [Unknown]

NARRATIVE: CASE EVENT DATE: 201405
